FAERS Safety Report 17807439 (Version 1)
Quarter: 2020Q2

REPORT INFORMATION
  Report Type: Spontaneous
  Country: US (occurrence: US)
  Receive Date: 20200520
  Receipt Date: 20200520
  Transmission Date: 20200714
  Serious: Yes (Other)
  Sender: FDA-Public Use
  Company Number: US-GILEAD-2020-0467111

PATIENT

DRUGS (2)
  1. ATRIPLA [Suspect]
     Active Substance: EFAVIRENZ\EMTRICITABINE\TENOFOVIR DISOPROXIL FUMARATE
     Indication: PRODUCT USED FOR UNKNOWN INDICATION
     Dosage: UNK
     Route: 048
     Dates: start: 2009, end: 2017
  2. TRUVADA [Suspect]
     Active Substance: EMTRICITABINE\TENOFOVIR DISOPROXIL FUMARATE
     Indication: PRODUCT USED FOR UNKNOWN INDICATION
     Dosage: UNK
     Route: 048
     Dates: start: 2006, end: 2009

REACTIONS (8)
  - Bone density decreased [Unknown]
  - Renal cancer [Unknown]
  - Renal failure [Not Recovered/Not Resolved]
  - Tooth loss [Unknown]
  - Arthritis [Unknown]
  - Intervertebral disc degeneration [Unknown]
  - Spinal osteoarthritis [Unknown]
  - Spinal stenosis [Unknown]
